FAERS Safety Report 6446843-4 (Version None)
Quarter: 2009Q4

REPORT INFORMATION
  Report Type: 
  Country: None (occurrence: None)
  Receive Date: 20091119
  Receipt Date: 20091110
  Transmission Date: 20100525
  Serious: Yes (Other)
  Sender: FDA-Public Use
  Company Number: US-JNJFOC-20061003496

PATIENT
  Sex: Female

DRUGS (1)
  1. RISPERDAL [Suspect]
     Indication: PARANOIA
     Route: 065

REACTIONS (3)
  - DIABETES MELLITUS [None]
  - INTERCEPTED MEDICATION ERROR [None]
  - NERVOUSNESS [None]
